FAERS Safety Report 9490627 (Version 1)
Quarter: 2013Q3

REPORT INFORMATION
  Report Type: Spontaneous
  Country: IT (occurrence: None)
  Receive Date: 20130826
  Receipt Date: 20130826
  Transmission Date: 20140515
  Serious: Yes (Other)
  Sender: FDA-Public Use
  Company Number: CC400190006

PATIENT
  Age: 38 Year
  Sex: Male

DRUGS (2)
  1. HEPARIN SODIUM IN DEXTROSE [Suspect]
     Indication: PROPHYLAXIS
  2. SODIC ENOXAPAIRN [Concomitant]

REACTIONS (6)
  - Heparin-induced thrombocytopenia [None]
  - Thrombosis [None]
  - Pulmonary embolism [None]
  - Carotid artery occlusion [None]
  - Visual acuity reduced [None]
  - Cerebral infarction [None]
